FAERS Safety Report 11593387 (Version 2)
Quarter: 2015Q4

REPORT INFORMATION
  Report Type: Spontaneous
  Country: US (occurrence: US)
  Receive Date: 20151005
  Receipt Date: 20151013
  Transmission Date: 20160304
  Serious: Yes (Hospitalization, Other)
  Sender: FDA-Public Use
  Company Number: US-APOTEX-2015AP013206

PATIENT
  Age: 46 Year
  Sex: Female

DRUGS (1)
  1. TAMOXIFEN CITRATE TABLETS USP [Suspect]
     Active Substance: TAMOXIFEN CITRATE
     Indication: INVASIVE DUCTAL BREAST CARCINOMA
     Dosage: 20 MG, DAILY
     Route: 065

REACTIONS (2)
  - Portal vein thrombosis [Not Recovered/Not Resolved]
  - Oesophageal varices haemorrhage [Recovered/Resolved]
